FAERS Safety Report 6981000-4 (Version None)
Quarter: 2010Q3

REPORT INFORMATION
  Report Type: 
  Country: None (occurrence: None)
  Receive Date: 20100914
  Receipt Date: 20100903
  Transmission Date: 20110219
  Serious: Yes (Death, Hospitalization, Other)
  Sender: FDA-Public Use
  Company Number: B0674312A

PATIENT
  Age: 58 Year
  Sex: Male

DRUGS (2)
  1. ZANAMIVIR [Suspect]
     Route: 065
  2. OSELTAMIVIR [Suspect]
     Dosage: 75MG TWICE PER DAY
     Route: 048

REACTIONS (11)
  - ACIDOSIS [None]
  - ASPERGILLOSIS [None]
  - DIFFUSE ALVEOLAR DAMAGE [None]
  - DRUG RESISTANCE [None]
  - HAEMODYNAMIC INSTABILITY [None]
  - HYPOXIA [None]
  - ILEUS PARALYTIC [None]
  - PNEUMONITIS [None]
  - RENAL FAILURE [None]
  - THROMBOCYTOPENIA [None]
  - VIRAL LOAD INCREASED [None]
